FAERS Safety Report 16903398 (Version 1)
Quarter: 2019Q4

REPORT INFORMATION
  Report Type: Spontaneous
  Country: US (occurrence: US)
  Receive Date: 20191010
  Receipt Date: 20191010
  Transmission Date: 20200122
  Serious: No
  Sender: FDA-Public Use
  Company Number: US-PFIZER INC-2018462308

PATIENT
  Age: 56 Year
  Sex: Female

DRUGS (2)
  1. LYRICA [Suspect]
     Active Substance: PREGABALIN
     Indication: MONONEUROPATHY
     Dosage: 75 MG, 3X/DAY, (1 CAPSULE, THREE TIMES DAILY)
     Route: 048
  2. LYRICA [Suspect]
     Active Substance: PREGABALIN
     Indication: POLYNEUROPATHY

REACTIONS (3)
  - Gait inability [Unknown]
  - Insomnia [Unknown]
  - Pain in extremity [Unknown]
